FAERS Safety Report 16627996 (Version 2)
Quarter: 2019Q3

REPORT INFORMATION
  Report Type: Spontaneous
  Country: LB (occurrence: LB)
  Receive Date: 20190724
  Receipt Date: 20190920
  Transmission Date: 20191004
  Serious: Yes (Death, Life-Threatening, Hospitalization)
  Sender: FDA-Public Use
  Company Number: PHHY2019LB171097

PATIENT
  Age: 55 Year
  Sex: Female

DRUGS (1)
  1. TRAMETINIB [Suspect]
     Active Substance: TRAMETINIB
     Indication: PANCREATIC CARCINOMA
     Dosage: 2 MG, QD
     Route: 048
     Dates: start: 201906, end: 201907

REACTIONS (8)
  - Oesophageal ulcer haemorrhage [Recovered/Resolved]
  - Product use in unapproved indication [Unknown]
  - Dyspnoea [Recovered/Resolved]
  - Pancreatic carcinoma [Fatal]
  - Myocardial infarction [Recovered/Resolved]
  - Malignant neoplasm progression [Fatal]
  - Chest pain [Recovered/Resolved]
  - Haematemesis [Recovered/Resolved]

NARRATIVE: CASE EVENT DATE: 201906
